FAERS Safety Report 20378341 (Version 1)
Quarter: 2022Q1

REPORT INFORMATION
  Report Type: Spontaneous
  Country: US (occurrence: US)
  Receive Date: 20220126
  Receipt Date: 20220126
  Transmission Date: 20220423
  Serious: No
  Sender: FDA-Public Use
  Company Number: US-SA-SAC20220123000179

PATIENT
  Sex: Male

DRUGS (2)
  1. FABRAZYME [Suspect]
     Active Substance: AGALSIDASE BETA
     Indication: Fabry^s disease
  2. PEGUNIGALSIDASE ALFA [Suspect]
     Active Substance: PEGUNIGALSIDASE ALFA
     Indication: Fabry^s disease

REACTIONS (1)
  - Paternal exposure timing unspecified [Unknown]
